FAERS Safety Report 19904132 (Version 1)
Quarter: 2021Q3

REPORT INFORMATION
  Report Type: Spontaneous
  Country: GB (occurrence: GB)
  Receive Date: 20210930
  Receipt Date: 20210930
  Transmission Date: 20211014
  Serious: Yes (Other)
  Sender: FDA-Public Use
  Company Number: GB-COLLEGIUM PHARMACEUTICAL, INC.-2021CGM01066

PATIENT
  Age: 54 Year
  Sex: Male

DRUGS (2)
  1. TAPENTADOL [Suspect]
     Active Substance: TAPENTADOL
     Indication: PRODUCT USED FOR UNKNOWN INDICATION
     Dosage: 100 MG, 3X/DAY
     Route: 048
     Dates: end: 202109
  2. TAPENTADOL [Suspect]
     Active Substance: TAPENTADOL
     Dosage: 100 MG, 2X/DAY
     Route: 048
     Dates: start: 202109

REACTIONS (1)
  - Erectile dysfunction [Not Recovered/Not Resolved]

NARRATIVE: CASE EVENT DATE: 202109
